FAERS Safety Report 5900537-X (Version None)
Quarter: 2008Q3

REPORT INFORMATION
  Report Type: 
  Country: None (occurrence: None)
  Receive Date: 20080926
  Receipt Date: 20080912
  Transmission Date: 20090109
  Serious: No
  Sender: FDA-Public Use
  Company Number: US-B.I. PHARMACEUTICALS,INC./RIDGEFIELD-2006-BP-03763BP

PATIENT
  Sex: Male

DRUGS (12)
  1. SPIRIVA [Suspect]
     Indication: CHRONIC OBSTRUCTIVE PULMONARY DISEASE
     Dosage: 18MCG
     Route: 055
     Dates: start: 20040701
  2. ADVAIR DISKUS 100/50 [Concomitant]
     Indication: CHRONIC OBSTRUCTIVE PULMONARY DISEASE
  3. ADVAIR DISKUS 100/50 [Concomitant]
     Indication: DYSPNOEA
  4. CARDIZEM [Concomitant]
     Indication: HYPERTENSION
     Dosage: 240MG
  5. COZAAR [Concomitant]
     Indication: HYPERTENSION
     Dosage: 100MG
  6. HYTRIN [Concomitant]
     Indication: BENIGN PROSTATIC HYPERPLASIA
     Dosage: 3MG
  7. FLOMAX [Concomitant]
     Indication: BENIGN PROSTATIC HYPERPLASIA
     Dosage: .4MG
  8. COUMADIN [Concomitant]
     Indication: THROMBOSIS
  9. WARFARIN SODIUM [Concomitant]
     Dosage: .5MG
  10. HYDROCHLOROTHIAZIDE [Concomitant]
     Dosage: 12.5MG
  11. PRILOSEC [Concomitant]
  12. OXYGEN [Concomitant]
     Indication: DYSPNOEA

REACTIONS (1)
  - URINARY RETENTION [None]
